FAERS Safety Report 7495261-9 (Version None)
Quarter: 2011Q2

REPORT INFORMATION
  Report Type: 
  Country: None (occurrence: None)
  Receive Date: 20110522
  Receipt Date: 20110509
  Transmission Date: 20111010
  Serious: Yes (Hospitalization)
  Sender: FDA-Public Use
  Company Number: BE-MYLANLABS-2011S1009906

PATIENT
  Age: 80 Year
  Sex: Male

DRUGS (7)
  1. BISOPROLOL FUMARATE [Concomitant]
     Route: 065
  2. ZYPREXA [Concomitant]
     Indication: BIPOLAR DISORDER
     Dosage: 5MG DAILY
     Route: 065
  3. CETIRIZINE HCL [Concomitant]
     Dosage: 10MG
     Route: 065
  4. FELODIPINE [Concomitant]
     Dosage: 10MG
     Route: 065
  5. TERAZOSIN HCL [Concomitant]
     Dosage: 5MG
     Route: 065
  6. LITHIUM CARBONATE [Interacting]
     Indication: BIPOLAR DISORDER
     Route: 065
  7. FUROSEMIDE [Suspect]
     Dosage: 40MG DAILY
     Route: 065

REACTIONS (3)
  - DRUG INTERACTION [None]
  - DIABETES INSIPIDUS [None]
  - TOXICITY TO VARIOUS AGENTS [None]
